FAERS Safety Report 8923598 (Version 1)
Quarter: 2012Q4

REPORT INFORMATION
  Report Type: 
  Country: JP (occurrence: JP)
  Receive Date: 20121123
  Receipt Date: 20121123
  Transmission Date: 20130627
  Serious: Yes (Death)
  Sender: FDA-Public Use
  Company Number: PHHY2012JP105861

PATIENT
  Age: 77 Year
  Sex: Male

DRUGS (1)
  1. EVEROLIMUS [Suspect]
     Indication: RENAL CELL CARCINOMA

REACTIONS (1)
  - Death [Fatal]
